FAERS Safety Report 17559275 (Version 1)
Quarter: 2020Q1

REPORT INFORMATION
  Report Type: Spontaneous
  Country: US (occurrence: US)
  Receive Date: 20200319
  Receipt Date: 20200319
  Transmission Date: 20200409
  Serious: No
  Sender: FDA-Public Use
  Company Number: US-ASTRAZENECA-2020SE26554

PATIENT
  Age: 61 Year
  Sex: Female
  Weight: 68.4 kg

DRUGS (1)
  1. IMFINZI [Suspect]
     Active Substance: DURVALUMAB
     Indication: LUNG NEOPLASM MALIGNANT
     Route: 042
     Dates: start: 20190816

REACTIONS (2)
  - Incorrect dose administered by product [Unknown]
  - Infusion related reaction [Recovered/Resolved]
